FAERS Safety Report 15632419 (Version 4)
Quarter: 2020Q4

REPORT INFORMATION
  Report Type: Report from Study
  Country: US (occurrence: US)
  Receive Date: 20181119
  Receipt Date: 20201020
  Transmission Date: 20210113
  Serious: Yes (Hospitalization, Other)
  Sender: FDA-Public Use
  Company Number: US-HORIZON-KRY-0370-2018

PATIENT
  Age: 47 Year
  Sex: Female

DRUGS (3)
  1. KRYSTEXXA [Suspect]
     Active Substance: PEGLOTICASE
     Indication: GOUT
     Dates: start: 20181026
  2. IMURAN [Concomitant]
     Active Substance: AZATHIOPRINE
  3. BELATACEPT [Concomitant]
     Active Substance: BELATACEPT
     Route: 042

REACTIONS (5)
  - Gout [Recovered/Resolved]
  - Urinary tract infection [Recovered/Resolved]
  - Renal transplant failure [Not Recovered/Not Resolved]
  - Feeding disorder [Recovered/Resolved]
  - Blood uric acid increased [Unknown]
